FAERS Safety Report 5326055-8 (Version None)
Quarter: 2007Q2

REPORT INFORMATION
  Report Type: 
  Country: None (occurrence: None)
  Receive Date: 20070516
  Receipt Date: 20070505
  Transmission Date: 20071010
  Serious: Yes (Hospitalization)
  Sender: FDA-Public Use
  Company Number: AU-ELI_LILLY_AND_COMPANY-AU200705003229

PATIENT
  Age: 36 Year
  Sex: Female

DRUGS (8)
  1. ZYPREXA [Suspect]
     Indication: BIPOLAR DISORDER
     Dosage: 7.5 MG, DAILY (1/D)
     Route: 048
  2. LITHIUM CARBONATE [Concomitant]
     Dosage: 450 MG, UNK
     Dates: end: 20070505
  3. LEVOTHYROXINE SODIUM [Concomitant]
     Dosage: 150 UG, UNK
  4. VALPROATE SODIUM [Concomitant]
  5. EDRONAX [Concomitant]
  6. ANTIDEPRESSANTS [Concomitant]
  7. CLARITHROMYCIN [Concomitant]
     Indication: BACTERIAL INFECTION
     Dates: start: 20070101
  8. CECLOR [Concomitant]
     Indication: BACTERIAL INFECTION

REACTIONS (2)
  - PNEUMONIA [None]
  - THERAPEUTIC AGENT TOXICITY [None]
